FAERS Safety Report 8518399-3 (Version None)
Quarter: 2012Q3

REPORT INFORMATION
  Report Type: 
  Country: None (occurrence: None)
  Receive Date: 20120718
  Receipt Date: 20120710
  Transmission Date: 20120928
  Serious: Yes (Hospitalization)
  Sender: FDA-Public Use
  Company Number: US-JNJFOC-20120706092

PATIENT
  Sex: Female
  Weight: 31.8 kg

DRUGS (3)
  1. REMICADE [Suspect]
     Indication: CROHN'S DISEASE
     Route: 042
     Dates: start: 20080101, end: 20090306
  2. REMICADE [Suspect]
     Route: 042
     Dates: start: 20050101, end: 20060101
  3. ANTIBIOTICS [Concomitant]

REACTIONS (1)
  - CROHN'S DISEASE [None]
